FAERS Safety Report 10259881 (Version 1)
Quarter: 2014Q2

REPORT INFORMATION
  Report Type: Spontaneous
  Country: FR (occurrence: FR)
  Receive Date: 20140625
  Receipt Date: 20140625
  Transmission Date: 20141212
  Serious: Yes (Hospitalization)
  Sender: FDA-Public Use
  Company Number: FR-GLAXOSMITHKLINE-B1004459A

PATIENT
  Age: 55 Year
  Sex: Male

DRUGS (7)
  1. AUGMENTIN (INJECTION) [Suspect]
     Indication: ANAESTHETIC PREMEDICATION
     Route: 065
     Dates: start: 20130203, end: 20130206
  2. RANIPLEX [Suspect]
     Indication: ANAESTHETIC PREMEDICATION
     Route: 048
     Dates: start: 20130206, end: 20130206
  3. ATARAX [Suspect]
     Indication: ANAESTHETIC PREMEDICATION
     Route: 048
     Dates: start: 20130206, end: 20130206
  4. SUFENTANIL [Suspect]
     Indication: ANAESTHESIA
     Route: 065
     Dates: start: 20130206, end: 20130206
  5. CELOCURINE [Suspect]
     Indication: ANAESTHESIA
     Route: 065
     Dates: start: 20130206, end: 20130206
  6. PROPOFOL [Suspect]
     Indication: ANAESTHESIA
     Route: 065
     Dates: start: 20130206, end: 20130206
  7. ATENOLOL [Concomitant]
     Route: 065

REACTIONS (7)
  - Anaphylactic shock [Recovered/Resolved]
  - Cardiac arrest [Recovered/Resolved]
  - Electrocardiogram ST segment elevation [Recovered/Resolved]
  - Ventricular fibrillation [Recovered/Resolved]
  - Blood pressure decreased [Recovered/Resolved]
  - Bradycardia [Recovered/Resolved]
  - Bronchospasm [Recovered/Resolved]
